FAERS Safety Report 7575205-1 (Version None)
Quarter: 2011Q2

REPORT INFORMATION
  Report Type: 
  Country: None (occurrence: None)
  Receive Date: 20110627
  Receipt Date: 20091031
  Transmission Date: 20111010
  Serious: Yes (Hospitalization, Other)
  Sender: FDA-Public Use
  Company Number: US-BAYER-200937679NA

PATIENT
  Age: 50 Year
  Sex: Female
  Weight: 75 kg

DRUGS (16)
  1. PENICILLIN [Concomitant]
     Dosage: 500 MG, BID
     Route: 048
     Dates: start: 19650101
  2. BENADRYL [Concomitant]
     Dosage: 6 G, BYPASS
     Dates: start: 20051213, end: 20051213
  3. DIGOXIN [Concomitant]
     Dosage: 0.25
     Route: 048
     Dates: start: 19830101
  4. MANNITOL [Concomitant]
     Dosage: 12.5 G, BYPASS
     Dates: start: 20051213, end: 20051213
  5. TRASYLOL [Suspect]
     Indication: INTRA-AORTIC BALLOON PLACEMENT
  6. TRASYLOL [Suspect]
     Indication: MITRAL VALVE REPLACEMENT
     Dosage: 200 ML CARDIOPULMONARY BYPASS PRIME
     Route: 042
     Dates: start: 20051213, end: 20051213
  7. DOPAMINE HCL [Concomitant]
     Dosage: UNK
     Route: 042
     Dates: start: 20051213, end: 20051213
  8. LISINOPRIL [Concomitant]
     Dosage: UNK
     Route: 048
     Dates: start: 20000101
  9. LASIX [Concomitant]
     Dosage: VARIED
     Route: 048
     Dates: start: 20050101, end: 20090101
  10. HEPARIN [Concomitant]
     Dosage: 10,000 UNITS, BYPASS
     Dates: start: 20051213, end: 20051213
  11. TRASYLOL [Suspect]
     Indication: TRICUSPID VALVE REPAIR
  12. CAPTOPRIL [Concomitant]
     Dosage: UNK
     Route: 048
     Dates: end: 20000101
  13. VANCOMYCIN [Concomitant]
     Dosage: 1.5 GRAMS EVERY 36 HOURS
     Route: 042
     Dates: start: 20051125, end: 20051213
  14. BUMEX [Concomitant]
     Dosage: RATE VARIED
     Dates: start: 20051108, end: 20051214
  15. GENTAMYCIN SULFATE [Concomitant]
     Dosage: UNK
     Route: 042
     Dates: start: 20051120, end: 20060109
  16. LIDOCAINE [Concomitant]
     Dosage: 200 MG, BYPASS
     Dates: start: 20051213, end: 20051213

REACTIONS (6)
  - RENAL FAILURE [None]
  - PAIN [None]
  - MULTIPLE INJURIES [None]
  - RENAL FAILURE ACUTE [None]
  - UNEVALUABLE EVENT [None]
  - INJURY [None]
